FAERS Safety Report 6298934-9 (Version None)
Quarter: 2009Q3

REPORT INFORMATION
  Report Type: 
  Country: None (occurrence: None)
  Receive Date: 20090804
  Receipt Date: 20090724
  Transmission Date: 20100115
  Serious: Yes (Disabling, Other)
  Sender: FDA-Public Use
  Company Number: 84443

PATIENT
  Age: 85 Year
  Sex: Male

DRUGS (1)
  1. AMIODARONE HCL INJ. 150MG/3ML [Suspect]
     Indication: ATRIAL FIBRILLATION

REACTIONS (3)
  - NEUROPATHIC ARTHROPATHY [None]
  - NEUROPATHY PERIPHERAL [None]
  - SKIN ULCER [None]
